FAERS Safety Report 22050531 (Version 1)
Quarter: 2023Q1

REPORT INFORMATION
  Report Type: Spontaneous
  Country: US (occurrence: None)
  Receive Date: 20230301
  Receipt Date: 20230301
  Transmission Date: 20230417
  Serious: Yes (Other)
  Sender: FDA-Public Use
  Company Number: 2023A044482

PATIENT
  Age: 22602 Day
  Sex: Male
  Weight: 110.2 kg

DRUGS (20)
  1. NEXIUM [Suspect]
     Active Substance: ESOMEPRAZOLE MAGNESIUM
     Route: 048
     Dates: start: 20130916
  2. RESTORIL [Concomitant]
     Active Substance: TEMAZEPAM
     Dates: start: 20140227
  3. AMBIEN [Concomitant]
     Active Substance: ZOLPIDEM TARTRATE
     Dates: start: 20140227
  4. HYDRODIURIL [Concomitant]
     Active Substance: HYDROCHLOROTHIAZIDE
     Dates: start: 20140227
  5. COLCHICINE [Concomitant]
     Active Substance: COLCHICINE
     Dates: start: 20140227
  6. XALATAN [Concomitant]
     Active Substance: LATANOPROST
     Dates: start: 20140227
  7. COSOPT [Concomitant]
     Active Substance: DORZOLAMIDE HYDROCHLORIDE\TIMOLOL MALEATE
     Dates: start: 20140227
  8. LIPITOR [Concomitant]
     Active Substance: ATORVASTATIN CALCIUM
     Dates: start: 20140227
  9. TADALAFIL [Concomitant]
     Active Substance: TADALAFIL
     Dates: start: 20140227
  10. COLACE [Concomitant]
     Active Substance: DOCUSATE SODIUM
     Dates: start: 20140227
  11. INDOCIN [Concomitant]
     Active Substance: INDOMETHACIN
     Dates: start: 20140227
  12. NARCAN [Concomitant]
     Active Substance: NALOXONE HYDROCHLORIDE
     Dates: start: 20140227
  13. AMLODIPINE [Concomitant]
     Active Substance: AMLODIPINE BESYLATE
     Dates: start: 20130916
  14. ANDROGEL [Concomitant]
     Active Substance: TESTOSTERONE
     Dates: start: 20130916
  15. CIALIS [Concomitant]
     Active Substance: TADALAFIL
     Dates: start: 20130916
  16. LUMIGAN [Concomitant]
     Active Substance: BIMATOPROST
     Dates: start: 20130916
  17. SILENOR [Concomitant]
     Active Substance: DOXEPIN HYDROCHLORIDE
     Dates: start: 20130916
  18. DECADRON [Concomitant]
     Active Substance: DEXAMETHASONE
     Dates: start: 20181105
  19. ZOFRAN [Concomitant]
     Active Substance: ONDANSETRON HYDROCHLORIDE
     Dates: start: 20181105
  20. COMPAZINE [Concomitant]
     Active Substance: PROCHLORPERAZINE MALEATE
     Dates: start: 20181105

REACTIONS (1)
  - Gastric cancer stage II [Unknown]

NARRATIVE: CASE EVENT DATE: 20181016
